FAERS Safety Report 17466213 (Version 4)
Quarter: 2020Q1

REPORT INFORMATION
  Report Type: Spontaneous
  Country: GB (occurrence: GB)
  Receive Date: 20200227
  Receipt Date: 20200318
  Transmission Date: 20200409
  Serious: Yes (Death, Hospitalization, Other)
  Sender: FDA-Public Use
  Company Number: GB-ABBVIE-20K-167-3294146-00

PATIENT
  Sex: Female
  Weight: 55.6 kg

DRUGS (8)
  1. VENETOCLAX. [Suspect]
     Active Substance: VENETOCLAX
     Route: 048
     Dates: start: 2020, end: 2020
  2. VENETOCLAX. [Suspect]
     Active Substance: VENETOCLAX
     Route: 048
     Dates: start: 2020, end: 2020
  3. VENETOCLAX. [Suspect]
     Active Substance: VENETOCLAX
     Route: 048
     Dates: start: 2020, end: 2020
  4. VENETOCLAX. [Suspect]
     Active Substance: VENETOCLAX
     Route: 048
     Dates: start: 2020
  5. VENETOCLAX. [Suspect]
     Active Substance: VENETOCLAX
     Route: 048
     Dates: start: 2020, end: 2020
  6. IBRUTINIB [Concomitant]
     Active Substance: IBRUTINIB
     Indication: PRODUCT USED FOR UNKNOWN INDICATION
  7. VENETOCLAX. [Suspect]
     Active Substance: VENETOCLAX
     Indication: CHRONIC LYMPHOCYTIC LEUKAEMIA
     Route: 048
     Dates: start: 2020, end: 2020
  8. VERAPAMIL [Concomitant]
     Active Substance: VERAPAMIL HYDROCHLORIDE
     Indication: PRODUCT USED FOR UNKNOWN INDICATION
     Route: 048

REACTIONS (16)
  - Arrhythmia [Fatal]
  - Blood potassium increased [Fatal]
  - Lower respiratory tract infection [Fatal]
  - Adverse event [Fatal]
  - Chronic obstructive pulmonary disease [Unknown]
  - Renal failure [Fatal]
  - Lung disorder [Fatal]
  - Lymphadenopathy [Unknown]
  - Creatinine renal clearance decreased [Unknown]
  - Tumour lysis syndrome [Fatal]
  - Respiratory failure [Fatal]
  - Renal impairment [Unknown]
  - Blood phosphorus increased [Unknown]
  - Pleural effusion [Fatal]
  - Splenomegaly [Unknown]
  - Lymphocyte count decreased [Fatal]

NARRATIVE: CASE EVENT DATE: 2020
